FAERS Safety Report 21354424 (Version 3)
Quarter: 2024Q1

REPORT INFORMATION
  Report Type: Report from Study
  Country: JP (occurrence: JP)
  Receive Date: 20220920
  Receipt Date: 20240126
  Transmission Date: 20240410
  Serious: Yes (Other)
  Sender: FDA-Public Use
  Company Number: JP-ASTELLAS-2022JP013937

PATIENT
  Age: 8 Decade
  Sex: Male

DRUGS (2)
  1. ENFORTUMAB VEDOTIN [Suspect]
     Active Substance: ENFORTUMAB VEDOTIN
     Indication: Neoplasm malignant
     Dosage: UNK UNK, UNKNOWN FREQ.
     Route: 065
  2. AVELUMAB [Concomitant]
     Active Substance: AVELUMAB
     Indication: Neoplasm malignant
     Dosage: UNK UNK, UNKNOWN FREQ.
     Route: 065

REACTIONS (4)
  - Gastric fistula [Unknown]
  - Malaise [Unknown]
  - Alopecia [Unknown]
  - KL-6 increased [Unknown]
